FAERS Safety Report 19136463 (Version 1)
Quarter: 2021Q2

REPORT INFORMATION
  Report Type: Report from Study
  Country: NL (occurrence: NL)
  Receive Date: 20210415
  Receipt Date: 20210415
  Transmission Date: 20210717
  Serious: Yes (Hospitalization, Other)
  Sender: FDA-Public Use
  Company Number: NL-AMGEN-NLDSL2021053500

PATIENT
  Age: 78 Year
  Sex: Male

DRUGS (13)
  1. TOBRAMYCINE [TOBRAMYCIN] [Concomitant]
     Active Substance: TOBRAMYCIN
     Dosage: 1/3MG/ML FL 5ML, 3D1DR
  2. SOTALOL. [Concomitant]
     Active Substance: SOTALOL
     Dosage: 40 MILLIGRAM, BID 1 TABLET
  3. CYPROTERON [Concomitant]
     Dosage: 10 MILLIGRAM, 1D1?2T
  4. OXYCODON [Concomitant]
     Active Substance: OXYCODONE
     Dosage: 5 MILLIGRAM, QID 1 TABLET WHEN NECCESSARY
  5. PANTOPRAZOL [PANTOPRAZOLE] [Concomitant]
     Active Substance: PANTOPRAZOLE
     Dosage: 20 MILLIGRAM, BID 1 TABLET
  6. NEULASTA [Suspect]
     Active Substance: PEGFILGRASTIM
     Indication: PRODUCT USED FOR UNKNOWN INDICATION
     Dosage: UNK
     Route: 065
  7. XGEVA [Suspect]
     Active Substance: DENOSUMAB
     Indication: PROPHYLAXIS
     Dosage: 120 MILLIGRAM, /1,7ML 1 INJ Q4WK
     Route: 058
     Dates: start: 20210308
  8. CALCIUM CARBONATE;COLECALCIFEROL [Concomitant]
     Active Substance: CALCIUM CARBONATE\CHOLECALCIFEROL
     Dosage: 2,5G/880IE (1000MG CA), 1D1T
  9. ENALAPRIL [Concomitant]
     Active Substance: ENALAPRIL
     Dosage: 5 MILLIGRAM, 1 TABLET BID
  10. SIMVASTATINE [Concomitant]
     Active Substance: SIMVASTATIN
     Dosage: 20 MILLIGRAM, QD 1 TABLET
  11. PREDNISOLON [PREDNISOLONE] [Concomitant]
     Active Substance: PREDNISOLONE
     Dosage: UNK UNK, BID 1 TABLET
  12. RIVAROXABAN [Concomitant]
     Active Substance: RIVAROXABAN
     Dosage: 20 MILLIGRAM, 1 TABLET QD
  13. DEXAMETHASON [DEXAMETHASONE] [Concomitant]
     Active Substance: DEXAMETHASONE
     Dosage: 1/3MG/ML FL 5ML, 3D1DR

REACTIONS (1)
  - Pneumonia [Recovered/Resolved]

NARRATIVE: CASE EVENT DATE: 20210315
